FAERS Safety Report 6638881-3 (Version None)
Quarter: 2010Q1

REPORT INFORMATION
  Report Type: 
  Country: None (occurrence: None)
  Receive Date: 20100316
  Receipt Date: 20100316
  Transmission Date: 20100710
  Serious: Yes (Other)
  Sender: FDA-Public Use
  Company Number: None

PATIENT
  Age: 68 Year
  Sex: Male
  Weight: 92.9 kg

DRUGS (1)
  1. ZENAPAX [Suspect]
     Indication: HODGKIN'S DISEASE
     Dosage: ZENPAX 5 MG IV DRIP YTTRIUM 90 10-15MCI IV DRIP
     Route: 041
     Dates: start: 20060330, end: 20060707

REACTIONS (1)
  - MYELODYSPLASTIC SYNDROME [None]
